FAERS Safety Report 23533979 (Version 1)
Quarter: 2024Q1

REPORT INFORMATION
  Report Type: Spontaneous
  Country: CA (occurrence: CA)
  Receive Date: 20240216
  Receipt Date: 20240216
  Transmission Date: 20240410
  Serious: Yes (Hospitalization, Other)
  Sender: FDA-Public Use
  Company Number: CA-FreseniusKabi-FK202402608

PATIENT
  Age: 49 Year
  Sex: Female

DRUGS (8)
  1. CLINDAMYCIN [Suspect]
     Active Substance: CLINDAMYCIN
     Indication: Product used for unknown indication
     Dosage: ROUTE: UNKNOWN ?FORM: NOT SPECIFIED
  2. ACCUTANE [Suspect]
     Active Substance: ISOTRETINOIN
     Indication: Product used for unknown indication
     Dosage: FORM: CAPSULES?ROUTE: UNKNOWN
  3. BENZOYL PEROXIDE\CLINDAMYCIN PHOSPHATE [Suspect]
     Active Substance: BENZOYL PEROXIDE\CLINDAMYCIN PHOSPHATE
     Indication: Product used for unknown indication
     Dosage: ROUTE: TOPICAL
  4. HUMIRA [Suspect]
     Active Substance: ADALIMUMAB
     Indication: Hidradenitis
     Dosage: FORM: SOLUTION SUBCUTANEOUS?ROUTE: SUBCUTANEOUS
  5. KEFLEX [Suspect]
     Active Substance: CEPHALEXIN
     Indication: Product used for unknown indication
     Dosage: FORM: NOT SPECIFIED?ROUTE: UNKNOWN
  6. MINOCYCLINE [Suspect]
     Active Substance: MINOCYCLINE HYDROCHLORIDE
     Indication: Product used for unknown indication
     Dosage: FORM: NOT SPECIFIED?ROUTE: UNKNOWN
  7. PROSCAR [Suspect]
     Active Substance: FINASTERIDE
     Indication: Product used for unknown indication
     Dosage: FORM: TABLET?ROUTE: UNKNOWN
  8. RIFAMPIN [Suspect]
     Active Substance: RIFAMPIN
     Indication: Product used for unknown indication
     Dosage: FORM: NOT SPECIFIED?ROUTE: UNKNOWN

REACTIONS (12)
  - Chest discomfort [Unknown]
  - Demyelination [Unknown]
  - Diplopia [Unknown]
  - Drug ineffective [Unknown]
  - Hidradenitis [Unknown]
  - Myasthenia gravis [Unknown]
  - Nystagmus [Unknown]
  - Ophthalmoplegia [Unknown]
  - Pilonidal disease [Unknown]
  - Skin induration [Unknown]
  - Skin plaque [Unknown]
  - White matter lesion [Unknown]
